FAERS Safety Report 8248586-3 (Version None)
Quarter: 2012Q1

REPORT INFORMATION
  Report Type: 
  Country: None (occurrence: None)
  Receive Date: 20120330
  Receipt Date: 20120323
  Transmission Date: 20120608
  Serious: Yes (Hospitalization, Other)
  Sender: FDA-Public Use
  Company Number: US-ASTRAZENECA-2011SE54824

PATIENT
  Age: 63 Year
  Sex: Female
  Weight: 68.9 kg

DRUGS (3)
  1. SEROQUEL [Suspect]
     Indication: ANXIETY
     Route: 048
  2. PRILOSEC [Suspect]
     Route: 048
  3. SEROQUEL [Suspect]
     Indication: DEPRESSION
     Route: 048

REACTIONS (6)
  - INTENTIONAL DRUG MISUSE [None]
  - DIZZINESS [None]
  - ROAD TRAFFIC ACCIDENT [None]
  - POST PROCEDURAL COMPLICATION [None]
  - BONE DISORDER [None]
  - ADVERSE EVENT [None]
